FAERS Safety Report 7626159-0 (Version None)
Quarter: 2011Q3

REPORT INFORMATION
  Report Type: 
  Country: None (occurrence: None)
  Receive Date: 20110721
  Receipt Date: 20110630
  Transmission Date: 20111222
  Serious: Yes (Other)
  Sender: FDA-Public Use
  Company Number: US-JNJFOC-20110704682

PATIENT
  Age: 67 Year
  Sex: Female
  Weight: 63.5 kg

DRUGS (5)
  1. EXTRA STRENGTH TYLENOL [Suspect]
     Indication: PYREXIA
     Dosage: 2 CAPLETS, EVERY 4 HOURS FOR 2 TO 3 DAYS
     Route: 048
     Dates: start: 20110201
  2. PREMARIN [Concomitant]
     Indication: HORMONE REPLACEMENT THERAPY
  3. ALL OTHER THERAPEUTIC PRODUCTS [Concomitant]
  4. SYNTHROID [Concomitant]
     Indication: THYROID DISORDER
     Dates: start: 20060101
  5. EXTRA STRENGTH TYLENOL [Suspect]
     Route: 048

REACTIONS (4)
  - HELICOBACTER INFECTION [None]
  - ABDOMINAL PAIN UPPER [None]
  - NAUSEA [None]
  - VOMITING [None]
